FAERS Safety Report 4302987-4 (Version None)
Quarter: 2004Q1

REPORT INFORMATION
  Report Type: 
  Country: None (occurrence: None)
  Receive Date: 20040224
  Receipt Date: 20031209
  Transmission Date: 20041129
  Serious: Yes (Hospitalization, Other)
  Sender: FDA-Public Use
  Company Number: FR-GLAXOSMITHKLINE-B0317182A

PATIENT
  Age: 39 Year
  Sex: Male
  Weight: 77 kg

DRUGS (7)
  1. AGENERASE [Suspect]
     Indication: HIV INFECTION
     Dosage: 4CAP TWICE PER DAY
     Route: 048
     Dates: start: 20031127, end: 20031209
  2. NORVIR [Concomitant]
     Indication: HIV INFECTION
     Dosage: 100MG TWICE PER DAY
     Route: 048
     Dates: start: 20031127, end: 20031209
  3. TRIZIVIR [Concomitant]
     Indication: HIV INFECTION
     Dosage: 1TAB TWICE PER DAY
     Route: 048
     Dates: start: 20031127, end: 20031209
  4. BACTRIM [Concomitant]
  5. BEFIZAL 400 [Concomitant]
     Dosage: 400MG PER DAY
     Route: 048
  6. RENITEC [Concomitant]
     Dosage: 20MG PER DAY
     Route: 048
  7. ZELITREX [Concomitant]
     Dosage: 500MG TWICE PER DAY
     Route: 048

REACTIONS (6)
  - ASTHENIA [None]
  - MUCOSAL ULCERATION [None]
  - PHARYNX DISCOMFORT [None]
  - PRURITUS [None]
  - RASH MACULO-PAPULAR [None]
  - TOXIC SKIN ERUPTION [None]
